FAERS Safety Report 6424753-6 (Version None)
Quarter: 2009Q4

REPORT INFORMATION
  Report Type: 
  Country: None (occurrence: None)
  Receive Date: 20091103
  Receipt Date: 20091026
  Transmission Date: 20100525
  Serious: Yes (Other)
  Sender: FDA-Public Use
  Company Number: US-AMGEN-US347179

PATIENT
  Sex: Male

DRUGS (11)
  1. NPLATE [Suspect]
     Indication: IDIOPATHIC THROMBOCYTOPENIC PURPURA
     Route: 058
     Dates: start: 20080930, end: 20081013
  2. PREDNISONE [Concomitant]
  3. MIRAPEX [Concomitant]
  4. IRON [Concomitant]
  5. PREVACID [Concomitant]
  6. INSULIN [Concomitant]
  7. ASCORBIC ACID [Concomitant]
  8. TOPROL-XL [Concomitant]
  9. SENNA [Concomitant]
  10. TRAZODONE [Concomitant]
  11. COLACE [Concomitant]

REACTIONS (12)
  - AGEUSIA [None]
  - ASTHENIA [None]
  - COUGH [None]
  - DECREASED APPETITE [None]
  - EPISTAXIS [None]
  - FAECES HARD [None]
  - FATIGUE [None]
  - HYPERGLYCAEMIA [None]
  - NAUSEA [None]
  - NUCLEATED RED CELLS [None]
  - ORTHOSTATIC HYPOTENSION [None]
  - WHITE BLOOD CELL COUNT ABNORMAL [None]
